FAERS Safety Report 14947012 (Version 2)
Quarter: 2022Q1

REPORT INFORMATION
  Report Type: Report from Study
  Country: JP (occurrence: JP)
  Receive Date: 20180529
  Receipt Date: 20220302
  Transmission Date: 20220423
  Serious: Yes (Hospitalization)
  Sender: FDA-Public Use
  Company Number: JP-JNJFOC-20180117662

PATIENT
  Age: 75 Year
  Sex: Male
  Weight: 50.9 kg

DRUGS (16)
  1. RIVAROXABAN [Suspect]
     Active Substance: RIVAROXABAN
     Indication: Deep vein thrombosis
     Dosage: 15 MG, BID
     Route: 048
     Dates: start: 20170922, end: 20170927
  2. RIVAROXABAN [Suspect]
     Active Substance: RIVAROXABAN
     Dosage: 15 MG, QD
     Route: 048
     Dates: start: 20170928, end: 20171228
  3. OXYCODONE [Concomitant]
     Active Substance: OXYCODONE
     Dosage: DAILY DOSE 2 DF
     Route: 048
     Dates: end: 20171218
  4. OXINORM [ORGOTEIN] [Concomitant]
     Dosage: DAILY DOSE 5 MG
     Route: 048
     Dates: end: 20171225
  5. LOXOPROFEN SODIUM [Concomitant]
     Active Substance: LOXOPROFEN SODIUM
     Dosage: DAILY DOSE 100 MG
     Route: 061
     Dates: end: 20170925
  6. LYRICA [Concomitant]
     Active Substance: PREGABALIN
     Dosage: DAILY DOSE 300 MG
     Route: 048
     Dates: end: 20171228
  7. ZYTIGA [Concomitant]
     Active Substance: ABIRATERONE ACETATE
     Dosage: DAILY DOSE 1000 MG
     Route: 048
     Dates: end: 20171228
  8. MAGNESIUM OXIDE [Concomitant]
     Active Substance: MAGNESIUM OXIDE
     Dosage: DAILY DOSE 990 MG
     Route: 048
     Dates: end: 20171228
  9. URSO [Concomitant]
     Active Substance: URSODIOL
     Indication: Prophylaxis
     Dosage: DAILY DOSE 300 MG
     Route: 048
     Dates: end: 20171214
  10. PREDONINE [Concomitant]
     Active Substance: PREDNISOLONE
     Dosage: DAILY DOSE 10 MG
     Route: 048
     Dates: end: 20171224
  11. CALCIUM CARBONATE\CHOLECALCIFEROL\MAGNESIUM CARBONATE [Concomitant]
     Active Substance: CALCIUM CARBONATE\CHOLECALCIFEROL\MAGNESIUM CARBONATE
     Indication: Prophylaxis
     Dosage: DAILY DOSE 2 DF
     Route: 048
     Dates: end: 20170928
  12. ALOSENN [SENNOSIDE A+B] [Concomitant]
     Dosage: DAILY DOSE 2 G
     Route: 048
     Dates: end: 20170928
  13. ZOLPIDEM TARTRATE [Concomitant]
     Active Substance: ZOLPIDEM TARTRATE
     Dosage: DAILY DOSE 5 MG
     Route: 048
     Dates: end: 20170925
  14. CELECOXIB [Concomitant]
     Active Substance: CELECOXIB
     Dosage: DAILY DOSE 200 MG
     Route: 048
     Dates: end: 20170925
  15. NALDEMEDINE TOSYLATE [Concomitant]
     Active Substance: NALDEMEDINE TOSYLATE
     Dosage: DAILY DOSE 0.2 MG
     Route: 048
     Dates: end: 20171228
  16. REBAMIPIDE [Concomitant]
     Active Substance: REBAMIPIDE
     Dosage: DAILY DOSE 300 MG
     Route: 048
     Dates: end: 20171225

REACTIONS (3)
  - Osteonecrosis of jaw [Recovered/Resolved]
  - Osteonecrosis of jaw [Unknown]
  - Mouth haemorrhage [Unknown]

NARRATIVE: CASE EVENT DATE: 20170926
